FAERS Safety Report 6858340-2 (Version None)
Quarter: 2010Q3

REPORT INFORMATION
  Report Type: 
  Country: None (occurrence: None)
  Receive Date: 20100719
  Receipt Date: 20080402
  Transmission Date: 20110219
  Serious: No
  Sender: FDA-Public Use
  Company Number: US-PFIZER INC-2008011715

PATIENT

DRUGS (3)
  1. CHANTIX [Suspect]
     Dates: start: 20080217
  2. VITAMINS [Concomitant]
  3. ALEVE (CAPLET) [Concomitant]

REACTIONS (4)
  - ABNORMAL DREAMS [None]
  - FATIGUE [None]
  - INCREASED APPETITE [None]
  - NAUSEA [None]
